FAERS Safety Report 26050464 (Version 1)
Quarter: 2025Q4

REPORT INFORMATION
  Report Type: Spontaneous
  Country: US (occurrence: US)
  Receive Date: 20251116
  Receipt Date: 20251116
  Transmission Date: 20260117
  Serious: No
  Sender: SANOFI AVENTIS
  Company Number: US-SA-2025SA338967

PATIENT
  Age: 70 Year
  Sex: Male

DRUGS (1)
  1. DUPIXENT [Suspect]
     Active Substance: DUPILUMAB
     Indication: Eczema nummular
     Dosage: 300 MG, QOW
     Route: 058
     Dates: start: 202505

REACTIONS (5)
  - Eczema nummular [Unknown]
  - Condition aggravated [Unknown]
  - Rash erythematous [Unknown]
  - Rash pruritic [Unknown]
  - Rash papular [Unknown]

NARRATIVE: CASE EVENT DATE: 20251001
